FAERS Safety Report 6265289-5 (Version None)
Quarter: 2009Q3

REPORT INFORMATION
  Report Type: 
  Country: None (occurrence: None)
  Receive Date: 20090709
  Receipt Date: 20090709
  Transmission Date: 20100115
  Serious: Yes (Other)
  Sender: FDA-Public Use
  Company Number: None

PATIENT
  Age: 75 Year
  Sex: Male
  Weight: 89.3586 kg

DRUGS (1)
  1. FLOMAX [Suspect]
     Indication: PROSTATE CANCER
     Dosage: 1 CAPSULE DAILY PO
     Route: 048
     Dates: start: 20070924, end: 20080910

REACTIONS (3)
  - IRIS DISORDER [None]
  - PERICARDITIS [None]
  - PLEURISY [None]
